FAERS Safety Report 9106644 (Version 1)
Quarter: 2013Q1

REPORT INFORMATION
  Report Type: Spontaneous
  Country: CN (occurrence: CN)
  Receive Date: 20130222
  Receipt Date: 20130222
  Transmission Date: 20140127
  Serious: Yes (Hospitalization)
  Sender: FDA-Public Use
  Company Number: PHHY2012CN127639

PATIENT
  Age: 23 Year
  Sex: Male
  Weight: 60 kg

DRUGS (6)
  1. TEGRETOL [Suspect]
     Indication: TRIGEMINAL NEURALGIA
     Dosage: 0.4 G, TID
     Route: 048
     Dates: start: 20110603, end: 20110604
  2. IBUPROFEN [Suspect]
     Indication: TRIGEMINAL NEURALGIA
  3. DIOSMIN [Suspect]
     Indication: TRIGEMINAL NEURALGIA
  4. CALCIUM ASCORBATE [Suspect]
     Indication: TRIGEMINAL NEURALGIA
  5. CODEINE PHOSPHATE [Suspect]
     Indication: TRIGEMINAL NEURALGIA
  6. CEFPROZIL [Suspect]
     Indication: TRIGEMINAL NEURALGIA

REACTIONS (6)
  - Vertigo [Recovered/Resolved]
  - Gait disturbance [Recovered/Resolved]
  - Flushing [Recovered/Resolved]
  - Nystagmus [Recovered/Resolved]
  - Dizziness [Recovered/Resolved]
  - Rash [Recovered/Resolved]
